FAERS Safety Report 11243637 (Version 1)
Quarter: 2015Q3

REPORT INFORMATION
  Report Type: Report from Study
  Country: US (occurrence: US)
  Receive Date: 20150707
  Receipt Date: 20150707
  Transmission Date: 20151125
  Serious: Yes (Hospitalization)
  Sender: FDA-Public Use
  Company Number: US-GILEAD-2015-0162075

PATIENT
  Age: 60 Year
  Sex: Female

DRUGS (10)
  1. PROAIR HFA [Concomitant]
     Active Substance: ALBUTEROL SULFATE
  2. OMEPRAZOLE. [Concomitant]
     Active Substance: OMEPRAZOLE
  3. RENVELA [Concomitant]
     Active Substance: SEVELAMER CARBONATE
  4. AMBRISENTAN [Suspect]
     Active Substance: AMBRISENTAN
     Indication: COR PULMONALE
     Dosage: 10 MG, QD
     Route: 065
     Dates: start: 20120711
  5. FUROSEMIDE. [Concomitant]
     Active Substance: FUROSEMIDE
  6. CYCLOBENZAPRINE [Concomitant]
     Active Substance: CYCLOBENZAPRINE
  7. TYVASO [Concomitant]
     Active Substance: TREPROSTINIL
  8. SPIRIVA [Concomitant]
     Active Substance: TIOTROPIUM BROMIDE MONOHYDRATE
  9. CARVEDILOL. [Concomitant]
     Active Substance: CARVEDILOL
  10. SILDENAFIL. [Concomitant]
     Active Substance: SILDENAFIL

REACTIONS (1)
  - Procedural hypotension [Unknown]

NARRATIVE: CASE EVENT DATE: 20150612
